FAERS Safety Report 9261554 (Version 1)
Quarter: 2013Q2

REPORT INFORMATION
  Report Type: Spontaneous
  Country: US (occurrence: US)
  Receive Date: 20130429
  Receipt Date: 20130429
  Transmission Date: 20140414
  Serious: Yes (Hospitalization, Other)
  Sender: FDA-Public Use
  Company Number: US-MERCK-1304USA015014

PATIENT
  Age: 46 Year
  Sex: Female

DRUGS (2)
  1. PEG-INTRON [Suspect]
     Indication: HEPATITIS C
     Dosage: UNK
     Dates: start: 20130107
  2. REBETOL [Suspect]
     Indication: HEPATITIS C
     Dosage: UNK
     Dates: start: 20130107

REACTIONS (10)
  - Loss of consciousness [Unknown]
  - Suicidal ideation [Unknown]
  - Pain [Unknown]
  - Back pain [Unknown]
  - Alopecia [Unknown]
  - Dry skin [Unknown]
  - Influenza like illness [Unknown]
  - Nausea [Unknown]
  - Myalgia [Unknown]
  - Drug dose omission [Unknown]
